FAERS Safety Report 6792685-X (Version None)
Quarter: 2010Q2

REPORT INFORMATION
  Report Type: 
  Country: None (occurrence: None)
  Receive Date: 20100624
  Receipt Date: 20080903
  Transmission Date: 20101027
  Serious: No
  Sender: FDA-Public Use
  Company Number: US-PFIZER INC-2008074029

PATIENT
  Sex: Female

DRUGS (9)
  1. XALATAN [Suspect]
     Indication: INTRAOCULAR PRESSURE INCREASED
     Dates: start: 20080630
  2. CRESTOR [Concomitant]
  3. RANEXA [Concomitant]
  4. PLAVIX [Concomitant]
  5. FLUOXETINE HCL [Concomitant]
  6. METOPROLOL [Concomitant]
  7. DILANTIN [Concomitant]
  8. ALPRAZOLAM [Concomitant]
  9. PROVIGIL [Concomitant]

REACTIONS (2)
  - EYE IRRITATION [None]
  - EYE PAIN [None]
